FAERS Safety Report 6460527-8 (Version None)
Quarter: 2009Q4

REPORT INFORMATION
  Report Type: 
  Country: None (occurrence: None)
  Receive Date: 20091130
  Receipt Date: 20091120
  Transmission Date: 20100525
  Serious: Yes (Hospitalization)
  Sender: FDA-Public Use
  Company Number: US-CUBIST-2009S1000525

PATIENT
  Age: 56 Year
  Sex: Female

DRUGS (4)
  1. CUBICIN [Suspect]
     Indication: FISTULA
     Route: 042
     Dates: start: 20090520, end: 20090714
  2. CUBICIN [Suspect]
     Indication: STAPHYLOCOCCAL INFECTION
     Route: 042
     Dates: start: 20090520, end: 20090714
  3. CUBICIN [Suspect]
     Route: 042
     Dates: start: 20090520, end: 20090714
  4. CUBICIN [Suspect]
     Route: 042
     Dates: start: 20090520, end: 20090714

REACTIONS (4)
  - ANTIMICROBIAL SUSCEPTIBILITY TEST INTERMEDIATE [None]
  - ANTIMICROBIAL SUSCEPTIBILITY TEST RESISTANT [None]
  - JOINT SWELLING [None]
  - KNEE ARTHROPLASTY [None]
